FAERS Safety Report 10501161 (Version 1)
Quarter: 2014Q4

REPORT INFORMATION
  Report Type: Spontaneous
  Country: US (occurrence: None)
  Receive Date: 20141006
  Receipt Date: 20141006
  Transmission Date: 20150528
  Serious: Yes (Disabling)
  Sender: FDA-Public Use
  Company Number: None

PATIENT
  Age: 31 Year
  Sex: Male
  Weight: 67.13 kg

DRUGS (2)
  1. TOPIRAMATE. [Suspect]
     Active Substance: TOPIRAMATE
     Indication: INJURY
     Dosage: 1 THREE TIMES DAILY TAKEN BY MOUTH
     Route: 048
     Dates: start: 20140901, end: 20140913
  2. TOPIRAMATE. [Suspect]
     Active Substance: TOPIRAMATE
     Indication: NERVOUS SYSTEM DISORDER
     Dosage: 1 THREE TIMES DAILY TAKEN BY MOUTH
     Route: 048
     Dates: start: 20140901, end: 20140913

REACTIONS (2)
  - Memory impairment [None]
  - Cognitive disorder [None]

NARRATIVE: CASE EVENT DATE: 20140901
